FAERS Safety Report 24207829 (Version 2)
Quarter: 2024Q3

REPORT INFORMATION
  Report Type: Report from Study
  Country: CA (occurrence: CA)
  Receive Date: 20240814
  Receipt Date: 20240822
  Transmission Date: 20241017
  Serious: Yes (Other)
  Sender: CSL BEHRING
  Company Number: CA-BEH-2024176609

PATIENT
  Age: 70 Year
  Sex: Male
  Weight: 94.8 kg

DRUGS (1)
  1. HIZENTRA [Suspect]
     Active Substance: HUMAN IMMUNOGLOBULIN G
     Indication: Secondary immunodeficiency
     Dosage: 10 G, QW
     Route: 058
     Dates: start: 20240728

REACTIONS (10)
  - Neuropathy peripheral [Unknown]
  - Neuropathy peripheral [Unknown]
  - Sensory loss [Unknown]
  - Hypoaesthesia [Unknown]
  - Paraesthesia [Unknown]
  - Contusion [Recovered/Resolved]
  - Tenderness [Unknown]
  - Hypoaesthesia [Unknown]
  - Pruritus [Unknown]
  - Pain [Unknown]
